FAERS Safety Report 9562422 (Version 1)
Quarter: 2013Q3

REPORT INFORMATION
  Report Type: Spontaneous
  Country: US (occurrence: US)
  Receive Date: 20130927
  Receipt Date: 20130927
  Transmission Date: 20140515
  Serious: Yes (Hospitalization)
  Sender: FDA-Public Use
  Company Number: US-GLAXOSMITHKLINE-A1042468A

PATIENT
  Sex: Female

DRUGS (1)
  1. AMERGE [Suspect]
     Indication: PRODUCT USED FOR UNKNOWN INDICATION
     Route: 048

REACTIONS (4)
  - Facial spasm [Unknown]
  - Headache [Unknown]
  - Ill-defined disorder [Unknown]
  - Drug administration error [Unknown]
